FAERS Safety Report 5189428-2 (Version None)
Quarter: 2006Q4

REPORT INFORMATION
  Report Type: 
  Country: None (occurrence: None)
  Receive Date: 20061215
  Receipt Date: 20061206
  Transmission Date: 20070319
  Serious: Yes (Other)
  Sender: FDA-Public Use
  Company Number: 2006150572

PATIENT
  Age: 70 Year
  Sex: Female
  Weight: 63.5036 kg

DRUGS (5)
  1. NEURONTIN [Suspect]
     Dates: start: 20020101
  2. CHANTIX [Suspect]
     Indication: SMOKING CESSATION THERAPY
     Dosage: 0.5 MG (0.5 MG, 1 IN 1 D)
     Dates: start: 20061101
  3. XANAX [Suspect]
     Indication: ANXIETY
     Dosage: 0.25 MG
     Dates: start: 20061101
  4. ZOLOFT [Suspect]
     Indication: DEPRESSION
     Dosage: 100MG (100 MG, 1 IN 1 D)
     Dates: start: 20061101
  5. CRESTOR (ROSUCASTATIN) [Concomitant]

REACTIONS (9)
  - ANOREXIA [None]
  - BLADDER DISORDER [None]
  - BRONCHITIS [None]
  - CYSTITIS [None]
  - DEPRESSION [None]
  - DYSGRAPHIA [None]
  - EMPHYSEMA [None]
  - TREMOR [None]
  - WEIGHT DECREASED [None]
